FAERS Safety Report 8356790-9 (Version None)
Quarter: 2012Q2

REPORT INFORMATION
  Report Type: 
  Country: None (occurrence: None)
  Receive Date: 20120514
  Receipt Date: 20120503
  Transmission Date: 20120825
  Serious: Yes (Other)
  Sender: FDA-Public Use
  Company Number: JP-COVIDIEN/TYCO HEALTHCARE/MALLINCKRODT-T201201635

PATIENT
  Age: 83 Year
  Sex: Male
  Weight: 42 kg

DRUGS (15)
  1. ROPIVACAINE HYDROCHLORIDE [Concomitant]
     Dosage: 0.1%
  2. DROPERIDOL [Concomitant]
     Indication: POSTOPERATIVE ANALGESIA
     Dosage: 2 ML
     Route: 008
  3. VECURONIUM BROMIDE [Concomitant]
     Indication: ANAESTHESIA
     Dosage: 4 MG, UNK
     Route: 008
  4. PHENYLEPHRINE HCL [Concomitant]
     Indication: HYPOTENSION
     Dosage: 0.1 MG, PRN
  5. ROPIVACAINE HYDROCHLORIDE [Concomitant]
     Indication: POSTOPERATIVE ANALGESIA
     Dosage: 100 ML 0.2%
     Route: 008
  6. SODIUM CHLORIDE [Concomitant]
     Indication: POSTOPERATIVE ANALGESIA
     Dosage: 73 ML
  7. FENTANYL CITRATE [Suspect]
     Dosage: 6.25 UG PER ML
     Route: 008
  8. PROPOFOL [Concomitant]
     Indication: ANAESTHESIA
     Dosage: 80 MG, UNK
     Route: 008
  9. PROPOFOL [Concomitant]
     Dosage: 3-10 MG/KG/HR
  10. REMIFENTANIL [Concomitant]
     Indication: ANAESTHESIA
     Dosage: 0.5 MG, HR
     Route: 008
  11. NITROUS OXIDE [Concomitant]
     Indication: ANAESTHESIA
     Dosage: 4 L, MIN
  12. BISOPROLOL FUMARATE [Concomitant]
     Indication: HYPERTENSION
  13. MEPIVACAINE HCL [Concomitant]
     Indication: ANAESTHESIA
     Dosage: 7 ML, 2%
     Route: 008
  14. OXYGEN [Concomitant]
     Dosage: 2 L/MIN
  15. FENTANYL CITRATE [Suspect]
     Indication: POSTOPERATIVE ANALGESIA
     Dosage: 25 ML
     Route: 008

REACTIONS (2)
  - DRUG HYPERSENSITIVITY [None]
  - DELAYED RECOVERY FROM ANAESTHESIA [None]
